FAERS Safety Report 7015631-2 (Version None)
Quarter: 2010Q3

REPORT INFORMATION
  Report Type: 
  Country: None (occurrence: None)
  Receive Date: 20100927
  Receipt Date: 20100916
  Transmission Date: 20110219
  Serious: Yes (Other)
  Sender: FDA-Public Use
  Company Number: US-JNJFOC-20100905536

PATIENT
  Sex: Male
  Weight: 29.48 kg

DRUGS (3)
  1. CONCERTA [Suspect]
     Indication: ATTENTION DEFICIT/HYPERACTIVITY DISORDER
     Route: 048
  2. MULTIPLE VITAMIN [Concomitant]
     Indication: MEDICAL DIET
     Route: 048
  3. UNKNOWN MEDICATION [Concomitant]
     Indication: MEDICAL DIET
     Route: 048

REACTIONS (4)
  - ABDOMINAL PAIN UPPER [None]
  - DECREASED APPETITE [None]
  - GROWTH RETARDATION [None]
  - HEADACHE [None]
